FAERS Safety Report 4399221-6 (Version None)
Quarter: 2004Q2

REPORT INFORMATION
  Report Type: 
  Country: None (occurrence: None)
  Receive Date: 20040621
  Receipt Date: 20040211
  Transmission Date: 20050107
  Serious: Yes (Other)
  Sender: FDA-Public Use
  Company Number: USA-2004-0013097

PATIENT
  Sex: Female

DRUGS (1)
  1. OXYCONTIN [Suspect]
     Dosage: MG
     Dates: start: 20000810, end: 20030601

REACTIONS (3)
  - ANXIETY [None]
  - DRUG ABUSER [None]
  - PAIN [None]
